FAERS Safety Report 10745322 (Version 1)
Quarter: 2015Q1

REPORT INFORMATION
  Report Type: Spontaneous
  Country: US (occurrence: None)
  Receive Date: 20150127
  Receipt Date: 20150127
  Transmission Date: 20150721
  Serious: Yes (Disabling)
  Sender: FDA-Public Use
  Company Number: None

PATIENT
  Age: 45 Year
  Sex: Female
  Weight: 89.81 kg

DRUGS (1)
  1. ESTRADIOL. [Suspect]
     Active Substance: ESTRADIOL
     Indication: OESTROGEN REPLACEMENT THERAPY
     Dosage: 1 PATCH TWICE A WEEK APPLIED TO A SURFACE, USUALLY THE SKIN
     Dates: start: 20150119, end: 20150123

REACTIONS (9)
  - Agitation [None]
  - Thinking abnormal [None]
  - Headache [None]
  - Mood swings [None]
  - Dizziness [None]
  - No therapeutic response [None]
  - Aggression [None]
  - Product quality issue [None]
  - Product substitution issue [None]

NARRATIVE: CASE EVENT DATE: 20150123
